FAERS Safety Report 20335917 (Version 1)
Quarter: 2022Q1

REPORT INFORMATION
  Report Type: Spontaneous
  Country: CA (occurrence: CA)
  Receive Date: 20220114
  Receipt Date: 20220114
  Transmission Date: 20220423
  Serious: Yes (Hospitalization, Other)
  Sender: FDA-Public Use
  Company Number: CA-NAPPMUNDI-GBR-2022-0094252

PATIENT
  Age: 34 Year
  Sex: Male

DRUGS (5)
  1. MORPHINE SULFATE [Suspect]
     Active Substance: MORPHINE SULFATE
     Indication: Pain
     Dosage: UNKNOWN
     Route: 065
  2. MORPHINE SULFATE [Suspect]
     Active Substance: MORPHINE SULFATE
     Indication: Colitis ulcerative
  3. HUMIRA [Suspect]
     Active Substance: ADALIMUMAB
     Indication: Product used for unknown indication
     Dosage: UNKNOWN
     Route: 058
  4. REMICADE [Suspect]
     Active Substance: INFLIXIMAB
     Indication: Product used for unknown indication
     Dosage: UNKNOWN
     Route: 065
  5. PREDNISONE [Concomitant]
     Active Substance: PREDNISONE
     Indication: Colitis ulcerative
     Dosage: 40 MG, DAILY
     Route: 065

REACTIONS (14)
  - Bedridden [Unknown]
  - Asthenia [Unknown]
  - Colitis ulcerative [Unknown]
  - Defaecation urgency [Unknown]
  - Drug ineffective [Unknown]
  - Frequent bowel movements [Unknown]
  - Haematochezia [Unknown]
  - Insomnia [Unknown]
  - Lethargy [Unknown]
  - Muscle spasms [Unknown]
  - Pain [Unknown]
  - Therapeutic product effect decreased [Unknown]
  - Transfusion [Unknown]
  - Weight decreased [Unknown]
